FAERS Safety Report 4978973-8 (Version None)
Quarter: 2006Q2

REPORT INFORMATION
  Report Type: 
  Country: None (occurrence: None)
  Receive Date: 20060419
  Receipt Date: 20060419
  Transmission Date: 20061013
  Serious: Yes (Life-Threatening)
  Sender: FDA-Public Use
  Company Number: None

PATIENT
  Sex: Female
  Weight: 66 kg

DRUGS (1)
  1. XIGRIS [Suspect]
     Indication: SEPSIS
     Dosage: 24MCG/KG/HR   DRIP    IV DRIP
     Route: 041
     Dates: start: 20060404, end: 20060406

REACTIONS (2)
  - PLATELET COUNT DECREASED [None]
  - THROMBOSIS [None]
